FAERS Safety Report 10141728 (Version 4)
Quarter: 2014Q3

REPORT INFORMATION
  Report Type: Report from Study
  Country: CN (occurrence: CN)
  Receive Date: 20140429
  Receipt Date: 20140722
  Transmission Date: 20150326
  Serious: Yes (Hospitalization, Other)
  Sender: FDA-Public Use
  Company Number: CN-UCBSA-119366

PATIENT
  Sex: Male
  Weight: 90 kg

DRUGS (6)
  1. LACOSAMIDE EP [Suspect]
     Active Substance: LACOSAMIDE
     Indication: EPILEPSY
     Dosage: 50 MG, 2X/DAY (BID)
     Route: 048
     Dates: start: 20140422, end: 20140428
  2. LACOSAMIDE EP [Suspect]
     Active Substance: LACOSAMIDE
     Dosage: 150 MG, 2X/DAY (BID)
     Route: 048
     Dates: start: 20140121, end: 20140421
  3. KEPPRA [Concomitant]
     Active Substance: LEVETIRACETAM
     Indication: EPILEPSY
     Dosage: .75 G, 2X/DAY (BID)
     Route: 048
     Dates: start: 20121005, end: 20140421
  4. KEPPRA [Concomitant]
     Active Substance: LEVETIRACETAM
     Dosage: .5 G, 2X/DAY (BID)
     Route: 048
     Dates: start: 20140422
  5. TRILEPTAL [Concomitant]
     Active Substance: OXCARBAZEPINE
     Dosage: .45 G, 2X/DAY (BID)
     Route: 048
     Dates: start: 20140429
  6. TRILEPTAL [Concomitant]
     Active Substance: OXCARBAZEPINE
     Indication: EPILEPSY
     Dosage: .3 G, 2X/DAY (BID)
     Route: 048
     Dates: start: 20111015, end: 20140428

REACTIONS (1)
  - Cerebral haemorrhage [Recovered/Resolved]

NARRATIVE: CASE EVENT DATE: 2014
